FAERS Safety Report 5888938-X (Version None)
Quarter: 2008Q3

REPORT INFORMATION
  Report Type: 
  Country: None (occurrence: None)
  Receive Date: 20080917
  Receipt Date: 20080903
  Transmission Date: 20090109
  Serious: Yes (Death)
  Sender: FDA-Public Use
  Company Number: 8036914

PATIENT
  Age: 15 Year
  Sex: Male

DRUGS (5)
  1. PREDNISOLONE [Suspect]
     Indication: PROPHYLAXIS AGAINST GRAFT VERSUS HOST DISEASE
  2. CYCLOPHOSPHAMIDE [Suspect]
     Indication: PROPHYLAXIS AGAINST GRAFT VERSUS HOST DISEASE
  3. ATGAM [Suspect]
  4. METHOTREXATE [Suspect]
  5. METHOTREXATE [Suspect]

REACTIONS (20)
  - APHASIA [None]
  - CSF TEST ABNORMAL [None]
  - DEMYELINATION [None]
  - DEPRESSED LEVEL OF CONSCIOUSNESS [None]
  - DISEASE PROGRESSION [None]
  - DRUG INEFFECTIVE [None]
  - DYSARTHRIA [None]
  - EPSTEIN-BARR VIRUS INFECTION [None]
  - EYE MOVEMENT DISORDER [None]
  - GRAFT VERSUS HOST DISEASE [None]
  - HEADACHE [None]
  - HERPES SIMPLEX [None]
  - JC VIRUS INFECTION [None]
  - LYMPHOPROLIFERATIVE DISORDER [None]
  - MUCOSAL INFECTION [None]
  - NAUSEA [None]
  - PNEUMONIA FUNGAL [None]
  - PROGRESSIVE MULTIFOCAL LEUKOENCEPHALOPATHY [None]
  - RESPIRATORY DISORDER [None]
  - STAPHYLOCOCCAL SEPSIS [None]
